FAERS Safety Report 6927731-3 (Version None)
Quarter: 2010Q3

REPORT INFORMATION
  Report Type: 
  Country: None (occurrence: None)
  Receive Date: 20100816
  Receipt Date: 20100816
  Transmission Date: 20110219
  Serious: Yes (Hospitalization)
  Sender: FDA-Public Use
  Company Number: None

PATIENT
  Age: 71 Year
  Sex: Male
  Weight: 66.1344 kg

DRUGS (18)
  1. AVASTIN [Suspect]
     Indication: NON-SMALL CELL LUNG CANCER
     Dosage: Q 21 DAYS
     Dates: start: 20100611, end: 20100702
  2. ABRAXANE [Suspect]
     Indication: NON-SMALL CELL LUNG CANCER
     Dosage: 100MG D1, 8 + 15
     Dates: start: 20100611, end: 20100716
  3. BACTRIM [Concomitant]
  4. COMPAZINE [Concomitant]
  5. DECADRON [Concomitant]
  6. FUROSEMIDE [Concomitant]
  7. LACTULOSE [Concomitant]
  8. MARINAOL [Concomitant]
  9. METHYLPHENIDATE HCL [Concomitant]
  10. OMEPRAZOLE [Concomitant]
  11. OXYCODONE [Concomitant]
  12. OXYCONTIN [Concomitant]
  13. POTASSIUM CHLORIDE [Concomitant]
  14. SEROQUEL [Concomitant]
  15. TRAZODONE HCL [Concomitant]
  16. ZOFRAN [Concomitant]
  17. ATIVAN [Concomitant]
  18. CARBOPLATIN [Suspect]
     Indication: NON-SMALL CELL LUNG CANCER
     Dosage: D1 Q 21 DAYS
     Dates: start: 20100611, end: 20100702

REACTIONS (4)
  - FAILURE TO THRIVE [None]
  - MUSCULAR WEAKNESS [None]
  - MYOPATHY [None]
  - PULMONARY EMBOLISM [None]
